FAERS Safety Report 22175735 (Version 1)
Quarter: 2023Q2

REPORT INFORMATION
  Report Type: Spontaneous
  Country: US (occurrence: None)
  Receive Date: 20230404
  Receipt Date: 20230404
  Transmission Date: 20230721
  Serious: Yes (Life-Threatening)
  Sender: FDA-Public Use
  Company Number: None

PATIENT
  Age: 43 Year
  Sex: Female
  Weight: 94.05 kg

DRUGS (3)
  1. WEGOVY [Suspect]
     Active Substance: SEMAGLUTIDE
     Indication: Weight decreased
     Dosage: OTHER QUANTITY : 1 INJECTION(S);?
     Route: 058
     Dates: start: 20230321, end: 20230321
  2. Vinamin D [Concomitant]
  3. B Folate [Concomitant]

REACTIONS (3)
  - Blood pressure decreased [None]
  - Urticaria [None]
  - Post procedural complication [None]

NARRATIVE: CASE EVENT DATE: 20230321
